FAERS Safety Report 11453656 (Version 1)
Quarter: 2015Q3

REPORT INFORMATION
  Report Type: Spontaneous
  Country: US (occurrence: US)
  Receive Date: 20150831
  Receipt Date: 20150831
  Transmission Date: 20151125
  Serious: No
  Sender: FDA-Public Use
  Company Number: US-ELI_LILLY_AND_COMPANY-US200910000257

PATIENT
  Age: 55 Year
  Sex: Female
  Weight: 90.7 kg

DRUGS (2)
  1. CYMBALTA [Suspect]
     Active Substance: DULOXETINE HYDROCHLORIDE
     Dosage: 60 MG, UNKNOWN
     Route: 048
  2. CYMBALTA [Suspect]
     Active Substance: DULOXETINE HYDROCHLORIDE
     Indication: MYOFASCIAL PAIN SYNDROME
     Dosage: 60 MG, UNKNOWN
     Route: 048

REACTIONS (4)
  - Anger [Recovered/Resolved]
  - Off label use [Not Recovered/Not Resolved]
  - Feeling of despair [Recovered/Resolved]
  - Feeling abnormal [Recovered/Resolved]
